FAERS Safety Report 10565752 (Version 1)
Quarter: 2014Q4

REPORT INFORMATION
  Report Type: Spontaneous
  Country: US (occurrence: None)
  Receive Date: 20141103
  Receipt Date: 20141103
  Transmission Date: 20150529
  Serious: Yes (Hospitalization, Other)
  Sender: FDA-Public Use
  Company Number: VAL_03509_2014

PATIENT
  Age: 62 Year
  Sex: Male

DRUGS (8)
  1. ERYTHROMYCIN. [Concomitant]
     Active Substance: ERYTHROMYCIN
  2. DOCOSAHEXANOIC ACID [Concomitant]
  3. VITAMINS NOS [Concomitant]
     Active Substance: VITAMINS
  4. POTASSIUM CHLORIDE. [Concomitant]
     Active Substance: POTASSIUM CHLORIDE
  5. BENADRYL [Concomitant]
     Active Substance: DIPHENHYDRAMINE HYDROCHLORIDE
  6. LOPRESSOR [Suspect]
     Active Substance: METOPROLOL TARTRATE
     Indication: HYPERTENSION
     Dosage: AMPOULE
     Dates: start: 1977
  7. EXCEDRIN EXTRA STRENGTH CAPLETS [Suspect]
     Active Substance: ACETAMINOPHEN\ASPIRIN\CAFFEINE
     Indication: SINUS HEADACHE
     Route: 048
     Dates: start: 1977
  8. FUROSEMIDE. [Suspect]
     Active Substance: FUROSEMIDE
     Indication: FLUID RETENTION
     Dates: start: 1977

REACTIONS (10)
  - Insomnia [None]
  - Familial tremor [None]
  - Arthritis [None]
  - Cholelithiasis [None]
  - Abdominal pain upper [None]
  - Somnolence [None]
  - Sinus headache [None]
  - Pneumonia [None]
  - Tinea pedis [None]
  - Type 2 diabetes mellitus [None]

NARRATIVE: CASE EVENT DATE: 1978
